FAERS Safety Report 19661380 (Version 1)
Quarter: 2021Q3

REPORT INFORMATION
  Report Type: Spontaneous
  Country: US (occurrence: US)
  Receive Date: 20210805
  Receipt Date: 20210805
  Transmission Date: 20211014
  Serious: No
  Sender: FDA-Public Use
  Company Number: US-PFIZER INC-202100920725

PATIENT
  Age: 85 Year
  Sex: Female

DRUGS (1)
  1. IBRANCE [Suspect]
     Active Substance: PALBOCICLIB
     Indication: BREAST CANCER FEMALE
     Dosage: 75 MG, CYCLIC (1 TABLET EVERY MON/WED/FRI, WITH OR WITHOUT FOOD; 3 WEEKS ON, 1 WEEK OFF)
     Route: 048

REACTIONS (2)
  - Memory impairment [Unknown]
  - Neoplasm progression [Unknown]
